FAERS Safety Report 11855763 (Version 2)
Quarter: 2016Q2

REPORT INFORMATION
  Report Type: Spontaneous
  Country: JP (occurrence: JP)
  Receive Date: 20151221
  Receipt Date: 20160429
  Transmission Date: 20160815
  Serious: Yes (Death, Life-Threatening, Hospitalization)
  Sender: FDA-Public Use
  Company Number: JP-ACTELION-A-CH2015-128786

PATIENT
  Age: 74 Year
  Sex: Female
  Weight: 32.5 kg

DRUGS (19)
  1. TRACLEER [Suspect]
     Active Substance: BOSENTAN
     Indication: SCLERODERMA ASSOCIATED DIGITAL ULCER
     Dosage: 125 MG, BID
     Route: 048
     Dates: start: 20151120, end: 20151124
  2. TRACLEER [Suspect]
     Active Substance: BOSENTAN
     Dosage: 62.5 MG, BID
     Route: 048
     Dates: start: 20151125, end: 20151126
  3. PROSTANDIN [Concomitant]
  4. ALFACALCIDOL [Concomitant]
     Active Substance: ALFACALCIDOL
  5. TOCOPHERYL NICOTINATE [Concomitant]
     Active Substance: TOCOPHERYL NICOTINATE, D-.ALPHA.
  6. SALINE [Concomitant]
     Active Substance: SODIUM CHLORIDE
  7. BONALON [Concomitant]
     Active Substance: ALENDRONATE SODIUM
  8. ESOMEPRAZOLE MAGNESIUM. [Concomitant]
     Active Substance: ESOMEPRAZOLE MAGNESIUM
  9. FERROUS SULFATE. [Concomitant]
     Active Substance: FERROUS SULFATE
  10. NEXIUM [Concomitant]
     Active Substance: ESOMEPRAZOLE MAGNESIUM
  11. ZOPICLONE [Concomitant]
     Active Substance: ZOPICLONE
  12. TRACLEER [Suspect]
     Active Substance: BOSENTAN
     Dosage: 62.5 MG, BID
     Route: 048
     Dates: start: 201511, end: 20151119
  13. CALFINA [Concomitant]
     Active Substance: ALFACALCIDOL
  14. CALONAL [Concomitant]
     Active Substance: ACETAMINOPHEN
  15. FERROUS SULFATE. [Concomitant]
     Active Substance: FERROUS SULFATE
  16. PALUX [Suspect]
     Active Substance: ALPROSTADIL
     Indication: SKIN ULCER
     Dosage: 5 MCG, UNK
     Route: 042
     Dates: start: 20151125, end: 20151126
  17. SODIUM CHLORIDE. [Concomitant]
     Active Substance: SODIUM CHLORIDE
  18. ALENDRONATE SODIUM. [Concomitant]
     Active Substance: ALENDRONATE SODIUM
  19. ACETAMINOPHEN. [Concomitant]
     Active Substance: ACETAMINOPHEN

REACTIONS (10)
  - Acute hepatic failure [Fatal]
  - Extremity necrosis [Unknown]
  - Aspartate aminotransferase increased [Not Recovered/Not Resolved]
  - Blood bilirubin increased [Not Recovered/Not Resolved]
  - Gamma-glutamyltransferase increased [Not Recovered/Not Resolved]
  - Treatment noncompliance [Unknown]
  - Alanine aminotransferase increased [Not Recovered/Not Resolved]
  - Hepatic function abnormal [Not Recovered/Not Resolved]
  - Concomitant disease aggravated [Not Recovered/Not Resolved]
  - Blood creatine phosphokinase increased [Unknown]

NARRATIVE: CASE EVENT DATE: 20151120
